FAERS Safety Report 6126551-X (Version None)
Quarter: 2009Q1

REPORT INFORMATION
  Report Type: 
  Country: None (occurrence: None)
  Receive Date: 20090320
  Receipt Date: 20090313
  Transmission Date: 20090719
  Serious: Yes (Hospitalization)
  Sender: FDA-Public Use
  Company Number: CA-ABBOTT-09P-028-0562223-00

PATIENT
  Sex: Female
  Weight: 67.192 kg

DRUGS (1)
  1. HUMIRA [Suspect]
     Indication: PSORIATIC ARTHROPATHY
     Route: 058
     Dates: start: 20061127

REACTIONS (3)
  - EMPHYSEMA [None]
  - LUNG INFECTION [None]
  - PNEUMONIA [None]
